FAERS Safety Report 19732564 (Version 2)
Quarter: 2022Q4

REPORT INFORMATION
  Report Type: Report from Study
  Country: US (occurrence: US)
  Receive Date: 20210822
  Receipt Date: 20221213
  Transmission Date: 20230113
  Serious: No
  Sender: FDA-Public Use
  Company Number: US-AMGEN-USASP2021125624

PATIENT
  Age: 77 Year
  Sex: Female

DRUGS (2)
  1. ENBREL [Suspect]
     Active Substance: ETANERCEPT
     Indication: Osteoarthritis
     Dosage: 50 MILLIGRAM, QWK
     Route: 065
     Dates: start: 20210721
  2. ENBREL [Suspect]
     Active Substance: ETANERCEPT
     Indication: Psoriatic arthropathy

REACTIONS (3)
  - Injection site pain [Unknown]
  - Device difficult to use [Unknown]
  - Lack of injection site rotation [Unknown]

NARRATIVE: CASE EVENT DATE: 20210701
